FAERS Safety Report 8544711-5 (Version None)
Quarter: 2012Q3

REPORT INFORMATION
  Report Type: 
  Country: None (occurrence: None)
  Receive Date: 20120727
  Receipt Date: 20120716
  Transmission Date: 20120928
  Serious: Yes (Hospitalization)
  Sender: FDA-Public Use
  Company Number: GB-BRISTOL-MYERS SQUIBB COMPANY-16769762

PATIENT
  Age: 69 Year
  Sex: Male

DRUGS (5)
  1. ASPIRIN [Concomitant]
  2. BISOPROLOL FUMARATE [Concomitant]
  3. ATORVASTATIN [Interacting]
  4. WARFARIN SODIUM [Suspect]
     Indication: ATRIAL FIBRILLATION
  5. PREDNISOLONE [Concomitant]

REACTIONS (2)
  - RHABDOMYOLYSIS [None]
  - DRUG INTERACTION [None]
